FAERS Safety Report 23877231 (Version 1)
Quarter: 2024Q2

REPORT INFORMATION
  Report Type: Spontaneous
  Country: US (occurrence: US)
  Receive Date: 20240521
  Receipt Date: 20240521
  Transmission Date: 20240716
  Serious: No
  Sender: FDA-Public Use
  Company Number: US-GILEAD-2024-0673175

PATIENT
  Age: 44 Year
  Sex: Male

DRUGS (1)
  1. SOFOSBUVIR\VELPATASVIR [Suspect]
     Active Substance: SOFOSBUVIR\VELPATASVIR
     Indication: Chronic hepatitis
     Dosage: 1 DOSAGE FORM, QD
     Route: 048

REACTIONS (3)
  - Headache [Recovered/Resolved]
  - Abdominal pain [Recovered/Resolved]
  - Fatigue [Unknown]
